FAERS Safety Report 21268883 (Version 16)
Quarter: 2022Q4

REPORT INFORMATION
  Report Type: Report from Study
  Country: KR (occurrence: KR)
  Receive Date: 20220830
  Receipt Date: 20221209
  Transmission Date: 20230113
  Serious: Yes (Other)
  Sender: FDA-Public Use
  Company Number: KR-JNJFOC-20220615067

PATIENT
  Age: 31 Year
  Sex: Male
  Weight: 87 kg

DRUGS (10)
  1. SPRAVATO [Suspect]
     Active Substance: ESKETAMINE
     Indication: Depression
     Dates: start: 20220516
  2. SPRAVATO [Suspect]
     Active Substance: ESKETAMINE
     Dates: start: 20220826
  3. ABILIFY [Concomitant]
     Active Substance: ARIPIPRAZOLE
  4. VENEXOR [Concomitant]
  5. LEXAPRO [Concomitant]
     Active Substance: ESCITALOPRAM OXALATE
  6. ENAFON [Concomitant]
  7. URSODIOL [Concomitant]
     Active Substance: URSODIOL
  8. SEROQUEL [Concomitant]
     Active Substance: QUETIAPINE FUMARATE
     Route: 065
  9. FISH OIL [Concomitant]
     Active Substance: FISH OIL
     Route: 065
  10. MAGNESIUM [Concomitant]
     Active Substance: MAGNESIUM
     Route: 065

REACTIONS (32)
  - Suicidal ideation [Not Recovered/Not Resolved]
  - Suicide attempt [Unknown]
  - Bipolar disorder [Unknown]
  - Poor quality sleep [Unknown]
  - Anxiety [Not Recovered/Not Resolved]
  - Fear [Unknown]
  - Feeling abnormal [Unknown]
  - Frustration tolerance decreased [Unknown]
  - Weight increased [Not Recovered/Not Resolved]
  - Stress [Not Recovered/Not Resolved]
  - Mood altered [Not Recovered/Not Resolved]
  - Lethargy [Not Recovered/Not Resolved]
  - Malaise [Recovering/Resolving]
  - Vision blurred [Unknown]
  - Myalgia [Recovered/Resolved]
  - Hypersomnia [Not Recovered/Not Resolved]
  - Irregular sleep phase [Not Recovered/Not Resolved]
  - Confusional state [Unknown]
  - Decreased appetite [Recovering/Resolving]
  - Therapeutic product effect decreased [Unknown]
  - Depression [Not Recovered/Not Resolved]
  - Epistaxis [Unknown]
  - Nasal dryness [Unknown]
  - Lip dry [Unknown]
  - Asthenia [Not Recovered/Not Resolved]
  - Contusion [Recovered/Resolved]
  - Illness [Unknown]
  - Dyspepsia [Not Recovered/Not Resolved]
  - Skin papilloma [Unknown]
  - Musculoskeletal stiffness [Recovered/Resolved]
  - Blood blister [Unknown]
  - Nasopharyngitis [Recovering/Resolving]

NARRATIVE: CASE EVENT DATE: 20220101
